FAERS Safety Report 5040572-X (Version None)
Quarter: 2006Q2

REPORT INFORMATION
  Report Type: 
  Country: None (occurrence: None)
  Receive Date: 20060630
  Receipt Date: 20060621
  Transmission Date: 20061013
  Serious: Yes (Other)
  Sender: FDA-Public Use
  Company Number: US-ROCHE-452960

PATIENT
  Age: 52 Year
  Sex: Female

DRUGS (7)
  1. BONIVA [Suspect]
     Indication: OSTEOPOROSIS
     Route: 048
     Dates: start: 20060320, end: 20060320
  2. PREVACID [Concomitant]
     Route: 048
  3. KLONOPIN [Concomitant]
     Route: 048
  4. VOLMAX [Concomitant]
     Indication: ASTHMA
     Route: 048
  5. ZELNORM [Concomitant]
     Indication: IRRITABLE BOWEL SYNDROME
     Route: 048
  6. WELLBUTRIN [Concomitant]
  7. TRAZODONE HCL [Concomitant]

REACTIONS (8)
  - CONTUSION [None]
  - DEPRESSION [None]
  - FATIGUE [None]
  - GENERALISED OEDEMA [None]
  - LYMPHADENOPATHY [None]
  - MASS [None]
  - MYALGIA [None]
  - SWELLING [None]
